FAERS Safety Report 24626815 (Version 1)
Quarter: 2024Q4

REPORT INFORMATION
  Report Type: Spontaneous
  Country: US (occurrence: US)
  Receive Date: 20241115
  Receipt Date: 20241115
  Transmission Date: 20250115
  Serious: No
  Sender: NOVO NORDISK
  Company Number: US-NOVOPROD-1198669

PATIENT
  Sex: Female

DRUGS (2)
  1. NOVOLOG [Suspect]
     Active Substance: INSULIN ASPART
     Indication: Product used for unknown indication
     Dosage: INJECT 10 UNITS IF BLOOD SUGAR IS HIGHER THAN 331
     Route: 042
     Dates: start: 20030101, end: 20230605
  2. TRESIBA [Concomitant]
     Active Substance: INSULIN DEGLUDEC
     Indication: Product used for unknown indication
     Dosage: UNK
     Route: 058

REACTIONS (5)
  - COVID-19 [Unknown]
  - Asthma [Unknown]
  - Blood pressure increased [Unknown]
  - Memory impairment [Unknown]
  - Dizziness [Unknown]
